FAERS Safety Report 9337192 (Version 1)
Quarter: 2013Q2

REPORT INFORMATION
  Report Type: Spontaneous
  Country: US (occurrence: US)
  Receive Date: 20130607
  Receipt Date: 20130607
  Transmission Date: 20140414
  Serious: Yes (Other)
  Sender: FDA-Public Use
  Company Number: US-UCBSA-088190

PATIENT
  Sex: 0

DRUGS (3)
  1. CIMZIA [Suspect]
     Indication: CROHN^S DISEASE
  2. HUMIRA [Concomitant]
  3. REMICADE [Concomitant]

REACTIONS (4)
  - Ileostomy [Unknown]
  - Abscess intestinal [Unknown]
  - Intestinal fistula [Unknown]
  - Drug ineffective [Unknown]
